FAERS Safety Report 10433627 (Version 1)
Quarter: 2014Q3

REPORT INFORMATION
  Report Type: Spontaneous
  Country: GB (occurrence: GB)
  Receive Date: 20140905
  Receipt Date: 20140905
  Transmission Date: 20150326
  Serious: Yes (Other)
  Sender: FDA-Public Use
  Company Number: PHHY2014GB106959

PATIENT
  Age: 58 Year
  Sex: Female

DRUGS (6)
  1. SIROLIMUS. [Concomitant]
     Active Substance: SIROLIMUS
     Indication: ENDOMETRIAL STROMAL SARCOMA
     Dosage: 1 MG, QD
  2. SIROLIMUS. [Concomitant]
     Active Substance: SIROLIMUS
     Dosage: 2 MG, QD
  3. LETROZOLE. [Suspect]
     Active Substance: LETROZOLE
     Dosage: 3 MG, QD
  4. LETROZOLE. [Suspect]
     Active Substance: LETROZOLE
     Indication: ENDOMETRIAL STROMAL SARCOMA
     Dosage: 2.5 MG, QD
  5. LETROZOLE. [Suspect]
     Active Substance: LETROZOLE
     Dosage: 2 MG, QD
  6. LEUPRORELIN [Suspect]
     Active Substance: LEUPROLIDE ACETATE
     Indication: ENDOMETRIAL STROMAL SARCOMA

REACTIONS (5)
  - Pelvic mass [Unknown]
  - Mucosal inflammation [Recovered/Resolved]
  - Drug resistance [Unknown]
  - Abdominal discomfort [Recovered/Resolved]
  - Malignant neoplasm progression [Unknown]
